FAERS Safety Report 9741008 (Version 1)
Quarter: 2013Q4

REPORT INFORMATION
  Report Type: Spontaneous
  Country: DE (occurrence: DE)
  Receive Date: 20131209
  Receipt Date: 20131209
  Transmission Date: 20140711
  Serious: Yes (Death, Hospitalization)
  Sender: FDA-Public Use
  Company Number: PHHY2013DE139516

PATIENT
  Age: 74 Year
  Sex: Male

DRUGS (5)
  1. AMIODARONE [Suspect]
     Indication: ATRIAL TACHYCARDIA
     Dosage: 800 MG/DAY
     Route: 048
  2. AMIODARONE [Suspect]
     Dosage: 200 MG/DAY
     Route: 048
  3. AMIODARONE [Suspect]
     Dosage: 600 MG/DAY
     Route: 048
  4. AMIODARONE [Suspect]
     Dosage: 600 MG, TID
     Route: 048
  5. SOTALOL [Suspect]
     Indication: ATRIAL TACHYCARDIA
     Dosage: 160 MG/DAY

REACTIONS (14)
  - Pulmonary toxicity [Fatal]
  - Multi-organ failure [Fatal]
  - Renal failure acute [Fatal]
  - Respiratory failure [Fatal]
  - Pneumonitis [Fatal]
  - Orthopnoea [Fatal]
  - Dyspnoea [Fatal]
  - Hypoxia [Fatal]
  - Lung infiltration [Fatal]
  - Cough [Fatal]
  - Leukocytosis [Fatal]
  - Electrocardiogram QRS complex prolonged [Unknown]
  - Accidental overdose [Unknown]
  - Drug ineffective [Unknown]
